FAERS Safety Report 5942637-4 (Version None)
Quarter: 2008Q4

REPORT INFORMATION
  Report Type: 
  Country: None (occurrence: None)
  Receive Date: 20081103
  Receipt Date: 20081021
  Transmission Date: 20090506
  Serious: Yes (Hospitalization, Other)
  Sender: FDA-Public Use
  Company Number: GXKR2008DE09169

PATIENT
  Age: 49 Year
  Sex: Female

DRUGS (1)
  1. CIPROFLOXACIN [Suspect]
     Indication: URINARY TRACT INFECTION
     Dosage: 500 MG, BID, ORAL
     Route: 048
     Dates: start: 20080919, end: 20080920

REACTIONS (8)
  - ATAXIA [None]
  - DIPLOPIA [None]
  - DIZZINESS [None]
  - ENCEPHALITIS [None]
  - ENCEPHALOMYELITIS [None]
  - GLIOSIS [None]
  - OPHTHALMOPLEGIA [None]
  - PARAESTHESIA [None]
